FAERS Safety Report 6963810-2 (Version None)
Quarter: 2010Q3

REPORT INFORMATION
  Report Type: 
  Country: None (occurrence: None)
  Receive Date: 20100902
  Receipt Date: 20100831
  Transmission Date: 20110219
  Serious: Yes (Hospitalization)
  Sender: FDA-Public Use
  Company Number: US-GILEAD-2010-0030023

PATIENT
  Sex: Male

DRUGS (17)
  1. LETAIRIS [Suspect]
     Indication: PULMONARY ARTERIAL HYPERTENSION
     Route: 048
     Dates: start: 20080811
  2. LASIX [Concomitant]
  3. CALAN [Concomitant]
  4. DIOVAN [Concomitant]
  5. TORSEMIDE [Concomitant]
  6. FLOMAX [Concomitant]
  7. AZATHIOPRINE [Concomitant]
  8. PREDNISONE [Concomitant]
  9. FLUTICASONE PROPIONATE [Concomitant]
  10. CALCIUM CARBONATE [Concomitant]
  11. OMEPRAZOLE [Concomitant]
  12. SIMETHICONE [Concomitant]
  13. BENZONATATE [Concomitant]
  14. BACTRIM DS [Concomitant]
  15. POT CL MICRO [Concomitant]
  16. CENTRUM SILVER [Concomitant]
  17. DOCUSATE [Concomitant]

REACTIONS (2)
  - DYSPNOEA [None]
  - PNEUMONIA [None]
